FAERS Safety Report 24079862 (Version 1)
Quarter: 2024Q3

REPORT INFORMATION
  Report Type: Spontaneous
  Country: US (occurrence: None)
  Receive Date: 20240711
  Receipt Date: 20240711
  Transmission Date: 20241017
  Serious: Yes (Other)
  Sender: Public
  Company Number: None

PATIENT
  Age: 26 Year
  Sex: Female
  Weight: 53.55 kg

DRUGS (1)
  1. LEXAPRO [Suspect]
     Active Substance: ESCITALOPRAM OXALATE
     Dosage: FREQUENCY : TWICE A DAY;?
     Route: 048
     Dates: start: 20240530

REACTIONS (2)
  - Fatigue [None]
  - Constipation [None]

NARRATIVE: CASE EVENT DATE: 20240612
